FAERS Safety Report 8815658 (Version 2)
Quarter: 2012Q4

REPORT INFORMATION
  Report Type: 
  Country: KR (occurrence: KR)
  Receive Date: 20120928
  Receipt Date: 20121010
  Transmission Date: 20130627
  Serious: Yes (Death)
  Sender: FDA-Public Use
  Company Number: KR-BAXTER-2012BAX018232

PATIENT
  Age: 74 Year
  Sex: Male
  Weight: 69 kg

DRUGS (2)
  1. OLICLINOMEL [Suspect]
     Indication: NUTRITIONAL SUPPLEMENT
     Route: 042
     Dates: start: 20120918, end: 20120918
  2. PREDNISOL [Concomitant]
     Indication: ARDS
     Route: 042
     Dates: start: 20120918, end: 20120919

REACTIONS (1)
  - Cardiac failure congestive [Fatal]
